FAERS Safety Report 8010197-2 (Version None)
Quarter: 2011Q4

REPORT INFORMATION
  Report Type: 
  Country: None (occurrence: None)
  Receive Date: 20111228
  Receipt Date: 20110922
  Transmission Date: 20120403
  Serious: No
  Sender: FDA-Public Use
  Company Number: US-BAYER-2011-091673

PATIENT
  Sex: Female

DRUGS (28)
  1. HYDROCODONE [Concomitant]
     Dosage: PRN UP TO 4 TIMES A DAY
  2. CLONIDINE [Concomitant]
     Dosage: 1 MG, PRN
  3. LIPITOR [Concomitant]
  4. LOTENSIN [Concomitant]
  5. HYDROXYZINE [Concomitant]
     Indication: PRURITUS
  6. AMBIEN [Concomitant]
  7. CALCIUM ACETATE [Concomitant]
  8. CIPROFLOXACIN [Suspect]
  9. ASPIRIN [Concomitant]
     Dosage: UNK UNK, QD
  10. LEXAPRO [Concomitant]
  11. PROTONIX [Concomitant]
  12. PROMETHAZINE [Concomitant]
     Indication: NAUSEA
  13. MAGNESIUM [Concomitant]
  14. LONOX [Concomitant]
     Indication: DIARRHOEA
  15. MULTI-VITAMIN [Concomitant]
  16. TRICOR [Concomitant]
     Dosage: 0.5 TABLET, QD
  17. BELLADONNA AND PHENOBARBITONE [Concomitant]
     Indication: DIARRHOEA
  18. CLONIDINE [Concomitant]
     Dosage: 1 MG, PRN
  19. ATIVAN [Concomitant]
     Indication: ANXIETY
     Dosage: UNK UNK, PRN
  20. NIFEDIPINE [Concomitant]
  21. BETHANECHOL [Concomitant]
     Dosage: 50 MG, BID
  22. VITAMIN B-12 [Concomitant]
  23. COREG [Concomitant]
     Dosage: UNK UNK, BID
  24. ACETAMINOPHEN [Concomitant]
     Dosage: PRN, UP TO 4 TIMES A DAY
  25. EFFEXOR [Concomitant]
  26. REQUIP [Concomitant]
     Indication: RESTLESS LEGS SYNDROME
     Dosage: UNK UNK, HS
  27. ALPRAZOLAM [Concomitant]
     Indication: ANXIETY
     Dosage: UNK UNK, PRN
  28. CLONAZEPAM [Concomitant]
     Indication: MUSCLE SPASMS
     Dosage: UNK UNK, PRN

REACTIONS (5)
  - MUSCLE SPASMS [None]
  - ORTHOSTATIC HYPOTENSION [None]
  - DISORIENTATION [None]
  - ARTHRALGIA [None]
  - NAUSEA [None]
